FAERS Safety Report 4969176-1 (Version None)
Quarter: 2006Q2

REPORT INFORMATION
  Report Type: 
  Country: None (occurrence: None)
  Receive Date: 20060411
  Receipt Date: 20051116
  Transmission Date: 20061013
  Serious: No
  Sender: FDA-Public Use
  Company Number: US-BRISTOL-MYERS SQUIBB COMPANY-13190822

PATIENT
  Age: 78 Year
  Sex: Female

DRUGS (10)
  1. CARBOPLATIN [Suspect]
     Dates: start: 20051108, end: 20051108
  2. ZOMETA [Concomitant]
  3. MULTI-VITAMIN [Concomitant]
  4. SENNA [Concomitant]
  5. PROTONIX [Concomitant]
  6. FOLIC ACID [Concomitant]
  7. COUMADIN [Concomitant]
  8. PREDNISONE [Concomitant]
  9. PARACETAMOL [Concomitant]
  10. HERCEPTIN [Concomitant]

REACTIONS (5)
  - ARTHRALGIA [None]
  - BACK PAIN [None]
  - BUTTOCK PAIN [None]
  - CHEST DISCOMFORT [None]
  - GROIN PAIN [None]
